FAERS Safety Report 17468730 (Version 1)
Quarter: 2020Q1

REPORT INFORMATION
  Report Type: Spontaneous
  Country: FR (occurrence: FR)
  Receive Date: 20200227
  Receipt Date: 20200227
  Transmission Date: 20200409
  Serious: Yes (Death)
  Sender: FDA-Public Use
  Company Number: FR-MYLANLABS-2020M1020875

PATIENT
  Age: 79 Year
  Sex: Female

DRUGS (5)
  1. FUROSEMIDE. [Concomitant]
     Active Substance: FUROSEMIDE
     Dosage: UNK
  2. OLANZAPINE MYLAN 10 MG ORODISPERSIBLE TABLETS [Suspect]
     Active Substance: OLANZAPINE
     Indication: MANIA
     Dosage: 15 MILLIGRAM, QD
     Route: 048
     Dates: start: 20190927
  3. HALDOL [Concomitant]
     Active Substance: HALOPERIDOL
     Dosage: UNK
  4. ZYPREXA [Suspect]
     Active Substance: OLANZAPINE
     Indication: PSYCHOTIC DISORDER
     Dosage: 1 DOSAGE FORM, TOTAL
     Route: 030
     Dates: start: 20190926, end: 20190926
  5. VENLAFAXINE [Concomitant]
     Active Substance: VENLAFAXINE HYDROCHLORIDE
     Indication: BIPOLAR I DISORDER
     Dosage: UNK
     Route: 048
     Dates: end: 20190930

REACTIONS (1)
  - Sudden death [Fatal]

NARRATIVE: CASE EVENT DATE: 20191003
